APPROVED DRUG PRODUCT: DONEPEZIL HYDROCHLORIDE
Active Ingredient: DONEPEZIL HYDROCHLORIDE
Strength: 5MG
Dosage Form/Route: TABLET, ORALLY DISINTEGRATING;ORAL
Application: A078388 | Product #002
Applicant: CHARTWELL RX SCIENCES LLC
Approved: Nov 26, 2010 | RLD: No | RS: No | Type: DISCN